FAERS Safety Report 21259906 (Version 1)
Quarter: 2022Q3

REPORT INFORMATION
  Report Type: Spontaneous
  Country: US (occurrence: US)
  Receive Date: 20220826
  Receipt Date: 20220826
  Transmission Date: 20221027
  Serious: Yes (Other)
  Sender: FDA-Public Use
  Company Number: US-PFIZER INC-202201087007

PATIENT
  Age: 61 Year
  Sex: Female
  Weight: 92.99 kg

DRUGS (1)
  1. PROPOFOL [Suspect]
     Active Substance: PROPOFOL
     Dosage: UNK
     Route: 042

REACTIONS (7)
  - Transient ischaemic attack [Unknown]
  - Coronary artery occlusion [Unknown]
  - Rectal haemorrhage [Unknown]
  - Feeling abnormal [Unknown]
  - Recalled product administered [Unknown]
  - Large intestine polyp [Unknown]
  - Colonoscopy [Unknown]
